FAERS Safety Report 16693486 (Version 1)
Quarter: 2019Q3

REPORT INFORMATION
  Report Type: Spontaneous
  Country: DK (occurrence: DK)
  Receive Date: 20190812
  Receipt Date: 20190812
  Transmission Date: 20191004
  Serious: Yes (Hospitalization)
  Sender: FDA-Public Use
  Company Number: DK-TEVA-2019-DK-1090248

PATIENT
  Age: 37 Year
  Sex: Female

DRUGS (8)
  1. IMOZOP [Concomitant]
     Active Substance: ZOPICLONE
     Indication: INSOMNIA
     Dosage: STRENGTH: 3.75 MG
     Route: 048
     Dates: start: 20181226
  2. ACICLODAN [Concomitant]
     Indication: HERPES VIRUS INFECTION
     Dosage: STRENGTH: 400 MG
     Route: 048
     Dates: start: 20181226
  3. ALNOK [Concomitant]
     Active Substance: CETIRIZINE HYDROCHLORIDE
     Indication: SEASONAL ALLERGY
     Dosage: STRENGTH: 10 MG.
     Route: 048
     Dates: start: 20190325
  4. BENDAMUSTIN ACTAVIS [Suspect]
     Active Substance: BENDAMUSTINE HYDROCHLORIDE
     Indication: ANGIOIMMUNOBLASTIC T-CELL LYMPHOMA
     Dosage: STRENGTH: 180 MG, DOSE: UNKNOWN
     Dates: start: 20190624
  5. ALLOPURINOL DAK [Concomitant]
     Active Substance: ALLOPURINOL
     Indication: ADVERSE DRUG REACTION
     Dosage: STRENGTH: 300 MG.
     Route: 048
  6. ADCETRIS [Suspect]
     Active Substance: BRENTUXIMAB VEDOTIN
     Indication: ANGIOIMMUNOBLASTIC T-CELL LYMPHOMA
     Dosage: STYRKE: 160 MG, DOSE: UNKNOWN
     Dates: start: 20190603
  7. AMOXICILLIN/CLAVULANSYRE AUROBINDO [Concomitant]
     Indication: PRODUCT USED FOR UNKNOWN INDICATION
     Dosage: DOSE: UNKNOWN, STRENGTH: UNKNOWN.
  8. LOCOID [Concomitant]
     Active Substance: HYDROCORTISONE BUTYRATE
     Indication: SKIN DISORDER
     Dosage: STRENGTH: 0.1 %
     Route: 003
     Dates: start: 20190529

REACTIONS (3)
  - C-reactive protein increased [Unknown]
  - Pyrexia [Unknown]
  - Infusion related reaction [Unknown]

NARRATIVE: CASE EVENT DATE: 20190715
